FAERS Safety Report 5931358-X (Version None)
Quarter: 2008Q4

REPORT INFORMATION
  Report Type: 
  Country: None (occurrence: None)
  Receive Date: 20081009
  Receipt Date: 20080603
  Transmission Date: 20090506
  Serious: Yes (Other)
  Sender: FDA-Public Use
  Company Number: PHEH2008US05053

PATIENT
  Age: 64 Year
  Sex: Female

DRUGS (5)
  1. ZOMETA [Suspect]
     Indication: BONE NEOPLASM MALIGNANT
     Dosage: 4 MG, ONCE, INTRAVENOUS
     Route: 042
     Dates: start: 20080401
  2. CISPLATIN [Concomitant]
  3. ETOPOSIDE [Concomitant]
  4. ARANESP [Concomitant]
  5. METOPROLOL TARTRATE [Concomitant]

REACTIONS (3)
  - COUGH [None]
  - DYSPHAGIA [None]
  - INCREASED UPPER AIRWAY SECRETION [None]
